FAERS Safety Report 5233293-1 (Version None)
Quarter: 2007Q1

REPORT INFORMATION
  Report Type: 
  Country: None (occurrence: None)
  Receive Date: 20070207
  Receipt Date: 20070129
  Transmission Date: 20070707
  Serious: Yes (Other)
  Sender: FDA-Public Use
  Company Number: JP-ABBOTT-07P-087-0356265-00

PATIENT
  Sex: Male

DRUGS (3)
  1. CEFZON [Suspect]
     Indication: BRONCHITIS
     Route: 048
     Dates: start: 20061121, end: 20061122
  2. PL GRAN. [Suspect]
     Indication: BRONCHITIS
     Route: 048
     Dates: start: 20061121, end: 20061122
  3. SERRAPEPTASE [Concomitant]
     Indication: DRUG USE FOR UNKNOWN INDICATION
     Dates: start: 20061121, end: 20061122

REACTIONS (2)
  - ABNORMAL BEHAVIOUR [None]
  - DELIRIUM [None]
